FAERS Safety Report 5293665-6 (Version None)
Quarter: 2007Q2

REPORT INFORMATION
  Report Type: 
  Country: None (occurrence: None)
  Receive Date: 20070411
  Receipt Date: 20070403
  Transmission Date: 20071010
  Serious: Yes (Life-Threatening, Hospitalization)
  Sender: FDA-Public Use
  Company Number: CN-SHR-CN-2007-011629

PATIENT
  Age: 56 Year
  Sex: Female
  Weight: 80 kg

DRUGS (1)
  1. ULTRAVIST 300 [Suspect]
     Indication: COMPUTERISED TOMOGRAM KIDNEY
     Dosage: 90 ML, 1 DOSE
     Route: 042
     Dates: start: 20070321, end: 20070321

REACTIONS (4)
  - SHOCK [None]
  - TACHYCARDIA [None]
  - URTICARIA GENERALISED [None]
  - VISION BLURRED [None]
